FAERS Safety Report 5269999-8 (Version None)
Quarter: 2007Q1

REPORT INFORMATION
  Report Type: 
  Country: None (occurrence: None)
  Receive Date: 20070320
  Receipt Date: 20070308
  Transmission Date: 20070707
  Serious: Yes (Other)
  Sender: FDA-Public Use
  Company Number: JP-MERCK-0703USA02437

PATIENT
  Age: 46 Year
  Sex: Female

DRUGS (10)
  1. ZOCOR [Suspect]
     Indication: HYPERLIPIDAEMIA
     Route: 048
  2. PROGRAF [Suspect]
     Route: 048
  3. BLOPRESS [Suspect]
     Route: 048
  4. CELLCEPT [Concomitant]
     Route: 048
  5. PREDNISOLONE [Concomitant]
     Route: 048
  6. COMELIAN [Concomitant]
     Indication: RENAL DISORDER
     Route: 048
  7. COMELIAN [Concomitant]
     Indication: CARDIAC DISORDER
     Route: 048
  8. PARIET [Concomitant]
     Route: 048
  9. ALLOPURINOL [Concomitant]
     Indication: HYPERURICAEMIA
     Route: 048
  10. ALFAROL [Concomitant]
     Route: 048

REACTIONS (3)
  - DRY MOUTH [None]
  - DYSGEUSIA [None]
  - HYPOZINCAEMIA [None]
